FAERS Safety Report 16451519 (Version 1)
Quarter: 2019Q2

REPORT INFORMATION
  Report Type: Spontaneous
  Country: IN (occurrence: IN)
  Receive Date: 20190619
  Receipt Date: 20190619
  Transmission Date: 20190711
  Serious: Yes (Other)
  Sender: FDA-Public Use
  Company Number: IN-SA-2019SA161140

PATIENT
  Age: 16 Year
  Sex: Female

DRUGS (4)
  1. AMITRIPTYLINE [Suspect]
     Active Substance: AMITRIPTYLINE
  2. GABAPENTIN. [Suspect]
     Active Substance: GABAPENTIN
     Dosage: UNK
  3. INSULIN GLARGINE [Suspect]
     Active Substance: INSULIN GLARGINE
     Indication: TYPE 1 DIABETES MELLITUS
     Route: 040
  4. INSULIN HUMAN REGULAR [Suspect]
     Active Substance: INSULIN HUMAN
     Indication: TYPE 1 DIABETES MELLITUS
     Route: 040

REACTIONS (8)
  - Diabetic neuropathy [Recovering/Resolving]
  - Hypertension [Recovering/Resolving]
  - Neuropathy peripheral [Recovering/Resolving]
  - Vision blurred [Recovered/Resolved]
  - Retinopathy hypertensive [Recovered/Resolved]
  - Diabetic retinopathy [Recovered/Resolved]
  - Tachycardia [Recovering/Resolving]
  - Burning sensation [Recovering/Resolving]
